FAERS Safety Report 17302898 (Version 1)
Quarter: 2020Q1

REPORT INFORMATION
  Report Type: Spontaneous
  Country: US (occurrence: US)
  Receive Date: 20200122
  Receipt Date: 20200122
  Transmission Date: 20200409
  Serious: No
  Sender: FDA-Public Use
  Company Number: US-ENDO PHARMACEUTICALS INC-2019-103762

PATIENT
  Sex: Male

DRUGS (2)
  1. PERCOCET [Suspect]
     Active Substance: ACETAMINOPHEN\OXYCODONE HYDROCHLORIDE
     Indication: PRODUCT USED FOR UNKNOWN INDICATION
     Dosage: UNK, UNKNOWN
     Route: 065
  2. LUCEMYRA [Suspect]
     Active Substance: LOFEXIDINE
     Indication: WITHDRAWAL SYNDROME
     Dosage: UNK, UNKNOWN
     Route: 065

REACTIONS (2)
  - Rhinorrhoea [Unknown]
  - Insomnia [Unknown]
